FAERS Safety Report 4983672-2 (Version None)
Quarter: 2006Q1

REPORT INFORMATION
  Report Type: 
  Country: None (occurrence: None)
  Receive Date: 20060227
  Receipt Date: 20050124
  Transmission Date: 20060701
  Serious: Yes (Hospitalization, Other)
  Sender: FDA-Public Use
  Company Number: WAES 0501USA03594

PATIENT
  Age: 70 Year
  Sex: Male

DRUGS (6)
  1. ZOCOR [Suspect]
     Dosage: PO
     Route: 048
     Dates: end: 20050117
  2. BIAXIN XL [Concomitant]
  3. COREG [Concomitant]
  4. COUMADIN [Concomitant]
  5. ALLOPURINOL [Concomitant]
  6. GLYBURIDE [Concomitant]

REACTIONS (6)
  - BLOOD CREATININE INCREASED [None]
  - BLOOD UREA INCREASED [None]
  - BRONCHITIS [None]
  - HEPATIC ENZYME INCREASED [None]
  - RHABDOMYOLYSIS [None]
  - SINUSITIS [None]
